FAERS Safety Report 16860163 (Version 3)
Quarter: 2019Q4

REPORT INFORMATION
  Report Type: Report from Study
  Country: IT (occurrence: IT)
  Receive Date: 20190927
  Receipt Date: 20191008
  Transmission Date: 20200122
  Serious: Yes (Death, Other)
  Sender: FDA-Public Use
  Company Number: IT-JNJFOC-20190932757

PATIENT
  Age: 63 Year
  Sex: Male
  Weight: 75 kg

DRUGS (4)
  1. VENETOCLAX. [Interacting]
     Active Substance: VENETOCLAX
     Route: 048
     Dates: start: 20190916, end: 20190925
  2. IBRUTINIB [Suspect]
     Active Substance: IBRUTINIB
     Indication: MANTLE CELL LYMPHOMA
     Route: 048
     Dates: start: 20190730, end: 20190913
  3. IBRUTINIB [Interacting]
     Active Substance: IBRUTINIB
     Route: 048
     Dates: start: 20190919
  4. VENETOCLAX. [Interacting]
     Active Substance: VENETOCLAX
     Indication: MANTLE CELL LYMPHOMA
     Dosage: RIMP UP PHASE
     Route: 048
     Dates: start: 20190902, end: 20190913

REACTIONS (5)
  - Product use issue [Recovered/Resolved]
  - Mantle cell lymphoma [Fatal]
  - Off label use [Recovered/Resolved]
  - Drug interaction [Unknown]
  - Supraventricular tachycardia [Recovered/Resolved]

NARRATIVE: CASE EVENT DATE: 2019
